FAERS Safety Report 19071421 (Version 4)
Quarter: 2021Q2

REPORT INFORMATION
  Report Type: Spontaneous
  Country: US (occurrence: US)
  Receive Date: 20210330
  Receipt Date: 20210618
  Transmission Date: 20210717
  Serious: No
  Sender: FDA-Public Use
  Company Number: US-SA-2021SA101647

PATIENT
  Age: 65 Year
  Sex: Female

DRUGS (24)
  1. DIPHENHYDRAMINE. [Concomitant]
     Active Substance: DIPHENHYDRAMINE
  2. LIDOCAINE. [Concomitant]
     Active Substance: LIDOCAINE
  3. METOPROLOL. [Concomitant]
     Active Substance: METOPROLOL
  4. LORAZEPAM. [Concomitant]
     Active Substance: LORAZEPAM
  5. ASPIRIN [ACETYLSALICYLIC ACID] [Concomitant]
     Active Substance: ASPIRIN
  6. IODINE. [Concomitant]
     Active Substance: IODINE
  7. NORMAL SALINE [Concomitant]
     Active Substance: SODIUM CHLORIDE
  8. CODEINE PHOSPHATE [Concomitant]
     Active Substance: CODEINE PHOSPHATE
  9. CITALOPRAM [Concomitant]
     Active Substance: CITALOPRAM HYDROBROMIDE
  10. HYDROCHLOROTHIAZIDE. [Concomitant]
     Active Substance: HYDROCHLOROTHIAZIDE
  11. STERILE WATER [Concomitant]
     Active Substance: WATER
  12. PFIZER?BIONTECH COVID?19 VACCINE [Concomitant]
     Active Substance: TOZINAMERAN
     Indication: COVID-19 PROPHYLAXIS
  13. LUMIZYME [Suspect]
     Active Substance: ALGLUCOSIDASE ALFA
     Indication: GLYCOGEN STORAGE DISEASE TYPE II
     Dosage: 2150 MG, QOW
     Route: 042
     Dates: start: 20201118
  14. ZOFRAN [Concomitant]
     Active Substance: ONDANSETRON HYDROCHLORIDE
  15. IBUPROFEN. [Concomitant]
     Active Substance: IBUPROFEN
  16. CLARITIN [Concomitant]
     Active Substance: LORATADINE
  17. ALBUTEROL [SALBUTAMOL SULFATE] [Concomitant]
     Active Substance: ALBUTEROL SULFATE
  18. ACETAMINOPHEN. [Concomitant]
     Active Substance: ACETAMINOPHEN
  19. BUPROPION. [Concomitant]
     Active Substance: BUPROPION
  20. PENICILLIN [PENICILLIN NOS] [Concomitant]
     Active Substance: PENICILLIN
  21. HEPARIN [Concomitant]
     Active Substance: HEPARIN SODIUM
  22. TRAMADOL. [Concomitant]
     Active Substance: TRAMADOL
  23. EPINEPHRINE. [Concomitant]
     Active Substance: EPINEPHRINE
  24. KLOR?CON [Concomitant]
     Active Substance: POTASSIUM CHLORIDE

REACTIONS (7)
  - Pain in extremity [Unknown]
  - Hypoaesthesia [Unknown]
  - Paraesthesia [Unknown]
  - Headache [Unknown]
  - Pain [Unknown]
  - Arthralgia [Unknown]
  - Pruritus [Unknown]
